FAERS Safety Report 21654512 (Version 1)
Quarter: 2022Q4

REPORT INFORMATION
  Report Type: Spontaneous
  Country: US (occurrence: US)
  Receive Date: 20221129
  Receipt Date: 20221129
  Transmission Date: 20230112
  Serious: No
  Sender: FDA-Public Use
  Company Number: US-AMGEN-USASP2022205717

PATIENT
  Age: 65 Year
  Sex: Female

DRUGS (2)
  1. PROLIA [Suspect]
     Active Substance: DENOSUMAB
     Indication: Osteoporosis postmenopausal
     Dosage: 60 MILLIGRAM, Q6MO
     Route: 058
     Dates: start: 201103, end: 201711
  2. PROLIA [Suspect]
     Active Substance: DENOSUMAB
     Indication: Breast cancer

REACTIONS (2)
  - Bone density abnormal [Unknown]
  - Tooth extraction [Unknown]

NARRATIVE: CASE EVENT DATE: 20171101
